FAERS Safety Report 20539285 (Version 3)
Quarter: 2023Q2

REPORT INFORMATION
  Report Type: Report from Study
  Country: FR (occurrence: FR)
  Receive Date: 20220302
  Receipt Date: 20230510
  Transmission Date: 20230721
  Serious: Yes (Life-Threatening, Hospitalization)
  Sender: FDA-Public Use
  Company Number: FR-JNJFOC-20210639071

PATIENT
  Age: 60 Year
  Sex: Female

DRUGS (17)
  1. DARATUMUMAB [Suspect]
     Active Substance: DARATUMUMAB
     Indication: Plasma cell myeloma
     Dosage: CYCLE 1 DAY 1 AND 2, 8MG/KG
     Route: 042
     Dates: start: 20201228, end: 20201229
  2. DARATUMUMAB [Suspect]
     Active Substance: DARATUMUMAB
     Dosage: CYCLE 1 DAY 8; 15 ; 22, 16 MG/KG.
     Route: 042
     Dates: start: 20210104, end: 20210119
  3. DARATUMUMAB [Suspect]
     Active Substance: DARATUMUMAB
     Dosage: CYCLE 2 DAY1- 8; 15 ; 16 MG/KG
     Route: 042
     Dates: start: 20210128, end: 20210211
  4. DARATUMUMAB [Suspect]
     Active Substance: DARATUMUMAB
     Dosage: CYCLE 3 DAY1- AND 15 ; 16 MG/KG
     Route: 042
     Dates: start: 20210225, end: 20210303
  5. DARATUMUMAB [Suspect]
     Active Substance: DARATUMUMAB
     Dosage: CYCLE 4 DAY1- AND 15 ; 16 MG/KG
     Route: 042
     Dates: start: 20210415, end: 20210429
  6. DARATUMUMAB [Suspect]
     Active Substance: DARATUMUMAB
     Dosage: CYCLE 5 DAY1- AND 15 ; 16 MG/KG
     Route: 042
     Dates: start: 20210517, end: 20210531
  7. LENALIDOMIDE [Suspect]
     Active Substance: LENALIDOMIDE
     Indication: Plasma cell myeloma
     Dosage: CYCLE 1 AND CYCLE 2 DAY 1 TO 21
     Route: 048
     Dates: start: 20201228, end: 20210617
  8. LENALIDOMIDE [Suspect]
     Active Substance: LENALIDOMIDE
     Dosage: CYCLE 3 DAY 1 TO 21
     Route: 048
     Dates: start: 20210225, end: 20210317
  9. LENALIDOMIDE [Suspect]
     Active Substance: LENALIDOMIDE
     Dosage: CYCLE 4 DAY 1 TO DAY 14
     Route: 048
     Dates: start: 20210415, end: 20210428
  10. LENALIDOMIDE [Suspect]
     Active Substance: LENALIDOMIDE
     Dosage: CYCLE 5 DAY 1 TO 21.
     Route: 048
     Dates: start: 20210517, end: 20210606
  11. DEXAMETHASONE [Suspect]
     Active Substance: DEXAMETHASONE
     Indication: Plasma cell myeloma
     Dosage: CYCLE 1 TO CYCLE 5 DAY 1-2;8-9;15-16 AND 22-23.
     Route: 048
     Dates: start: 20201228, end: 20210614
  12. CARFILZOMIB [Suspect]
     Active Substance: CARFILZOMIB
     Indication: Plasma cell myeloma
     Dosage: 20 MG/M2 DAY1 2 CYCLE1
     Route: 042
     Dates: start: 20201228, end: 20201229
  13. CARFILZOMIB [Suspect]
     Active Substance: CARFILZOMIB
     Dosage: 36 MG/M2 DAY 8-9 AND 15-16 CYCLE 1
     Route: 042
     Dates: start: 20210104, end: 20210112
  14. CARFILZOMIB [Suspect]
     Active Substance: CARFILZOMIB
     Dosage: 36 MG/M2 DAY 1-2 , 8-9 AND 15-16 CYCLE 2
     Route: 042
     Dates: start: 20210128, end: 20210212
  15. CARFILZOMIB [Suspect]
     Active Substance: CARFILZOMIB
     Dosage: 36 MG/M2 DAY 1-2 , 8-9 AND 15-16 CYCLE 3
     Route: 042
     Dates: start: 20210225, end: 20210312
  16. CARFILZOMIB [Suspect]
     Active Substance: CARFILZOMIB
     Dosage: 36 MG/M2 DAY 1-2 , 8-9 AND 15- CYCLE 4 DAY 16 NOT ADMINISTERED
     Route: 042
     Dates: start: 20210415, end: 20210429
  17. CARFILZOMIB [Suspect]
     Active Substance: CARFILZOMIB
     Dosage: 36 MG/M2 DAY 1-2 CYCLE 5
     Route: 042
     Dates: start: 20210517, end: 20210518

REACTIONS (4)
  - Dyspnoea [Recovered/Resolved]
  - COVID-19 [Recovered/Resolved with Sequelae]
  - Septic shock [Recovered/Resolved]
  - Pulmonary embolism [Recovered/Resolved]

NARRATIVE: CASE EVENT DATE: 20210612
